FAERS Safety Report 6766686-1 (Version None)
Quarter: 2010Q2

REPORT INFORMATION
  Report Type: 
  Country: None (occurrence: None)
  Receive Date: 20100611
  Receipt Date: 20100603
  Transmission Date: 20101027
  Serious: Yes (Hospitalization)
  Sender: FDA-Public Use
  Company Number: US-JNJFOC-20100602762

PATIENT
  Sex: Female
  Weight: 68.8 kg

DRUGS (8)
  1. LOPERAMIDE [Suspect]
     Indication: ABDOMINAL PAIN
     Route: 065
  2. LOPERAMIDE [Suspect]
     Indication: DIARRHOEA
     Route: 065
  3. MITOMYCIN [Suspect]
     Indication: DRUG USE FOR UNKNOWN INDICATION
     Route: 065
  4. CAMPTOSAR [Suspect]
     Indication: DRUG USE FOR UNKNOWN INDICATION
     Route: 065
  5. CAMPTOSAR [Suspect]
     Dosage: CYCLIC
     Route: 065
  6. CELEBREX [Suspect]
     Indication: DRUG USE FOR UNKNOWN INDICATION
     Route: 048
  7. ZOFRAN [Concomitant]
     Route: 065
  8. ATROPINE SULFATE [Concomitant]

REACTIONS (6)
  - ANAEMIA [None]
  - DEHYDRATION [None]
  - DRUG INEFFECTIVE [None]
  - NEUTROPENIA [None]
  - SMALL INTESTINAL OBSTRUCTION [None]
  - WHITE BLOOD CELL COUNT DECREASED [None]
